FAERS Safety Report 7266671-X (Version None)
Quarter: 2011Q1

REPORT INFORMATION
  Report Type: 
  Country: None (occurrence: None)
  Receive Date: 20110201
  Receipt Date: 20110124
  Transmission Date: 20110831
  Serious: Yes (Hospitalization)
  Sender: FDA-Public Use
  Company Number: NL-BIOGENIDEC-2010BI037484

PATIENT
  Age: 39 Year
  Sex: Female

DRUGS (1)
  1. TYSABRI [Suspect]
     Indication: MULTIPLE SCLEROSIS
     Route: 042
     Dates: start: 20071201

REACTIONS (4)
  - EPIGLOTTIC OEDEMA [None]
  - DIZZINESS [None]
  - VISUAL IMPAIRMENT [None]
  - DRUG SPECIFIC ANTIBODY PRESENT [None]
